FAERS Safety Report 7090830-2 (Version None)
Quarter: 2010Q4

REPORT INFORMATION
  Report Type: 
  Country: None (occurrence: None)
  Receive Date: 20101109
  Receipt Date: 20101101
  Transmission Date: 20110411
  Serious: Yes (Hospitalization)
  Sender: FDA-Public Use
  Company Number: US-SHIRE-ALL1-2010-05643

PATIENT
  Age: 70 Year
  Sex: Male

DRUGS (1)
  1. FOSRENOL [Suspect]
     Indication: HYPERPHOSPHATAEMIA
     Dosage: 1000 MG, 3X/DAY:TID (WITH MEALS)
     Route: 048
     Dates: start: 20100801

REACTIONS (4)
  - CORONARY ARTERY DISEASE [None]
  - GRAFT HAEMORRHAGE [None]
  - TROPONIN INCREASED [None]
  - VASCULAR CALCIFICATION [None]
